FAERS Safety Report 8142808-5 (Version None)
Quarter: 2012Q1

REPORT INFORMATION
  Report Type: 
  Country: None (occurrence: None)
  Receive Date: 20120216
  Receipt Date: 20120210
  Transmission Date: 20120608
  Serious: Yes (Hospitalization)
  Sender: FDA-Public Use
  Company Number: US-MERCK-1202USA01901

PATIENT
  Age: 85 Year
  Sex: Female

DRUGS (1)
  1. FOSAMAX [Suspect]
     Indication: BONE DISORDER
     Route: 065
     Dates: end: 20090813

REACTIONS (4)
  - PELVIC FRACTURE [None]
  - FALL [None]
  - HEAD INJURY [None]
  - HYPOTENSION [None]
